FAERS Safety Report 16071010 (Version 1)
Quarter: 2019Q1

REPORT INFORMATION
  Report Type: Spontaneous
  Country: JP (occurrence: JP)
  Receive Date: 20190314
  Receipt Date: 20190314
  Transmission Date: 20190418
  Serious: Yes (Other)
  Sender: FDA-Public Use
  Company Number: JP-ACCORD-112452

PATIENT
  Age: 67 Year
  Sex: Male

DRUGS (5)
  1. FILGRASTIM/GRANULOCYTE COLONY STIMULATING/LENOGRASTIM [Concomitant]
     Indication: PROPHYLAXIS
     Dosage: SUSTAINED-RELEASE ADMINISTERED ON DAY 6 OF EACH COURSE OF TREATMENT
  2. PEGFILGRASTIM [Concomitant]
     Active Substance: PEGFILGRASTIM
     Indication: PROPHYLAXIS
     Dosage: SUBCUTANEOUS INJECTION
     Route: 058
  3. FLUOROURACIL. [Suspect]
     Active Substance: FLUOROURACIL
     Indication: OESOPHAGEAL CARCINOMA
     Dosage: DAY 1 TO 5
  4. CISPLATIN. [Suspect]
     Active Substance: CISPLATIN
     Indication: OESOPHAGEAL CARCINOMA
     Dosage: DAY 1
  5. DOCETAXEL. [Suspect]
     Active Substance: DOCETAXEL
     Indication: OESOPHAGEAL CARCINOMA
     Dosage: DAY 1,28 DAILY ADMINISTRATION

REACTIONS (3)
  - Decreased appetite [Unknown]
  - Pulmonary fibrosis [Unknown]
  - Abdominal pain [Unknown]
